FAERS Safety Report 18554510 (Version 1)
Quarter: 2020Q4

REPORT INFORMATION
  Report Type: Spontaneous
  Country: NZ (occurrence: NZ)
  Receive Date: 20201127
  Receipt Date: 20201127
  Transmission Date: 20210114
  Serious: Yes (Life-Threatening, Hospitalization, Other)
  Sender: FDA-Public Use
  Company Number: NZ-GLAXOSMITHKLINE-NZ2020229412

PATIENT
  Age: 46 Year
  Sex: Female

DRUGS (1)
  1. NUCALA [Suspect]
     Active Substance: MEPOLIZUMAB
     Indication: ASTHMA
     Dosage: UNK

REACTIONS (8)
  - Antineutrophil cytoplasmic antibody negative [Unknown]
  - Asthma [Unknown]
  - Eosinophilic granulomatosis with polyangiitis [Unknown]
  - Drug ineffective [Unknown]
  - Condition aggravated [Unknown]
  - Rhinovirus infection [Unknown]
  - Adverse drug reaction [Unknown]
  - Antineutrophil cytoplasmic antibody positive [Unknown]
